FAERS Safety Report 19280123 (Version 1)
Quarter: 2021Q2

REPORT INFORMATION
  Report Type: Spontaneous
  Country: NO (occurrence: NO)
  Receive Date: 20210520
  Receipt Date: 20210520
  Transmission Date: 20210717
  Serious: Yes (Death)
  Sender: FDA-Public Use
  Company Number: NO-ACCORD-225436

PATIENT
  Age: 67 Year
  Sex: Male

DRUGS (2)
  1. SYMBICORT MITE TURBUHALER [Concomitant]
  2. CAPECITABINE ACCORD [Suspect]
     Active Substance: CAPECITABINE
     Indication: COLON CANCER
     Dosage: STRENGTH: 500 MG MILLIGRAM(S)
     Route: 048
     Dates: start: 20200406, end: 20200420

REACTIONS (1)
  - Cardiac arrest [Fatal]

NARRATIVE: CASE EVENT DATE: 20200422
